FAERS Safety Report 11399708 (Version 1)
Quarter: 2015Q3

REPORT INFORMATION
  Report Type: Report from Study
  Country: JP (occurrence: JP)
  Receive Date: 20150820
  Receipt Date: 20150820
  Transmission Date: 20151125
  Serious: Yes (Death, Life-Threatening)
  Sender: FDA-Public Use
  Company Number: JP-TEVA-587847ISR

PATIENT
  Age: 68 Year
  Sex: Male

DRUGS (6)
  1. GRANISETRON [Concomitant]
     Active Substance: GRANISETRON
     Dosage: 3 MG
     Route: 065
  2. VINORELBINE [Suspect]
     Active Substance: VINORELBINE\VINORELBINE TARTRATE
     Indication: NON-SMALL CELL LUNG CANCER
     Dosage: 25 MG/M2, DAYS 1 AND 8, CYCLIC
     Route: 042
  3. GEMCITABINE HYDROCHLORIDE. [Suspect]
     Active Substance: GEMCITABINE HYDROCHLORIDE
     Indication: NON-SMALL CELL LUNG CANCER
     Dosage: 1000 MG/M2, DAYS 1 AND 8, CYCLIC
     Route: 042
  4. CISPLATIN. [Suspect]
     Active Substance: CISPLATIN
     Indication: NON-SMALL CELL LUNG CANCER
     Dosage: 40 MG/M2, DAYS 1 AND 8, CYCLIC
     Route: 042
  5. DEXAMETHASONE. [Concomitant]
     Active Substance: DEXAMETHASONE
     Dosage: 16 MG
     Route: 065
  6. SALINE [Concomitant]
     Active Substance: SODIUM CHLORIDE
     Indication: PHLEBITIS
     Dosage: 100 ML
     Route: 042

REACTIONS (6)
  - Respiratory failure [Fatal]
  - Febrile neutropenia [Fatal]
  - Bacterial infection [Fatal]
  - Pulmonary vasculitis [Fatal]
  - Haemoptysis [Fatal]
  - Pulmonary haemorrhage [Fatal]
